FAERS Safety Report 6816414-6 (Version None)
Quarter: 2010Q3

REPORT INFORMATION
  Report Type: 
  Country: None (occurrence: None)
  Receive Date: 20100705
  Receipt Date: 20100701
  Transmission Date: 20110219
  Serious: Yes (Death)
  Sender: FDA-Public Use
  Company Number: PHHY2010BR43569

PATIENT
  Sex: Female

DRUGS (3)
  1. EXELON [Suspect]
     Indication: DEMENTIA ALZHEIMER'S TYPE
     Dosage: 1 DF, QD
     Route: 062
     Dates: start: 20100301
  2. NEULEPTIL [Concomitant]
     Dosage: 2 DRP, QD
  3. GINKGO BILOBA [Concomitant]
     Dosage: 120 MG, QD
     Route: 048

REACTIONS (1)
  - DEATH [None]
